FAERS Safety Report 22659795 (Version 1)
Quarter: 2023Q2

REPORT INFORMATION
  Report Type: Spontaneous
  Country: RU (occurrence: RU)
  Receive Date: 20230630
  Receipt Date: 20230630
  Transmission Date: 20230722
  Serious: Yes (Other)
  Sender: FDA-Public Use
  Company Number: RU-002147023-NVSC2023RU148983

PATIENT
  Age: 56 Year
  Sex: Female

DRUGS (4)
  1. METHOTREXATE [Suspect]
     Active Substance: METHOTREXATE
     Indication: Necrotising myositis
     Dosage: STARTING DOSE OF 7.5 MG (ON THE 25TH DAY OF OBSERVATION)
     Route: 065
  2. METHOTREXATE [Suspect]
     Active Substance: METHOTREXATE
     Dosage: GRADUAL INCREASE TO 10 MG, QW
     Route: 065
  3. METHOTREXATE [Suspect]
     Active Substance: METHOTREXATE
     Dosage: RESTARTED AT LOWEST DOSE OF 5 MG, QD
     Route: 065
  4. RITUXIMAB [Concomitant]
     Active Substance: RITUXIMAB
     Indication: Necrotising myositis
     Dosage: UNK, FROM THE 15TH DAY OF OBSERVATION
     Route: 065

REACTIONS (2)
  - Agranulocytosis [Recovering/Resolving]
  - Product use in unapproved indication [Unknown]
